FAERS Safety Report 8372668-9 (Version None)
Quarter: 2012Q2

REPORT INFORMATION
  Report Type: 
  Country: None (occurrence: None)
  Receive Date: 20120521
  Receipt Date: 20120510
  Transmission Date: 20120825
  Serious: Yes (Hospitalization, Other)
  Sender: FDA-Public Use
  Company Number: IE-SANOFI-AVENTIS-2012SA033106

PATIENT
  Age: 72 Year
  Sex: Female

DRUGS (5)
  1. XARELTO [Suspect]
     Indication: THROMBOSIS PROPHYLAXIS
     Route: 048
     Dates: start: 20120228
  2. ENOXAPARIN SODIUM [Suspect]
     Route: 058
  3. DICLOFENAC SODIUM [Suspect]
     Route: 065
  4. ACETAMINOPHEN W/ CODEINE [Concomitant]
  5. ESOMEPRAZOLE MAGNESIUM [Concomitant]

REACTIONS (6)
  - CIRCULATORY COLLAPSE [None]
  - NAUSEA [None]
  - HEADACHE [None]
  - SUBDURAL HAEMATOMA [None]
  - VOMITING [None]
  - NEUROLOGICAL DECOMPENSATION [None]
